FAERS Safety Report 17448551 (Version 7)
Quarter: 2020Q4

REPORT INFORMATION
  Report Type: Report from Study
  Country: US (occurrence: US)
  Receive Date: 20200224
  Receipt Date: 20201029
  Transmission Date: 20210113
  Serious: Yes (Death, Hospitalization, Other)
  Sender: FDA-Public Use
  Company Number: NVSC2020US050618

PATIENT
  Age: 75 Year
  Sex: Male
  Weight: 63.9 kg

DRUGS (7)
  1. AZITHROMYCIN ANHYDROUS. [Concomitant]
     Active Substance: AZITHROMYCIN ANHYDROUS
     Indication: MYCOBACTERIUM AVIUM COMPLEX INFECTION
     Dosage: 250 MG, QD
     Route: 048
     Dates: start: 20181007, end: 20200224
  2. AZITHROMYCIN ANHYDROUS. [Concomitant]
     Active Substance: AZITHROMYCIN ANHYDROUS
     Dosage: 250 MG, QD
     Route: 048
     Dates: start: 20200811, end: 20200930
  3. AMLODIPINE [Suspect]
     Active Substance: AMLODIPINE BESYLATE
     Indication: BLOOD PRESSURE INCREASED
     Dosage: UNK
     Route: 065
  4. AMIKACIN. [Concomitant]
     Active Substance: AMIKACIN
     Indication: MYCOBACTERIUM AVIUM COMPLEX INFECTION
     Dosage: 500 MG, BID
     Route: 055
     Dates: start: 20200113, end: 20200224
  5. AMIKACIN. [Concomitant]
     Active Substance: AMIKACIN
     Dosage: 500 MG, Q12H
     Route: 055
     Dates: start: 20200811, end: 20200930
  6. LAMPRENE [Suspect]
     Active Substance: CLOFAZIMINE
     Indication: MYCOBACTERIUM AVIUM COMPLEX INFECTION
     Dosage: 100 MG, QD
     Route: 048
     Dates: start: 20200113, end: 20200224
  7. LAMPRENE [Suspect]
     Active Substance: CLOFAZIMINE
     Dosage: 100 MG, QD
     Route: 048
     Dates: start: 20200811, end: 20200930

REACTIONS (13)
  - Hypoxia [Fatal]
  - Blood pressure increased [Recovered/Resolved]
  - Hepatic cyst [Not Recovered/Not Resolved]
  - Confusional state [Recovered/Resolved]
  - Hepatitis acute [Not Recovered/Not Resolved]
  - Dizziness postural [Not Recovered/Not Resolved]
  - Pneumonia staphylococcal [Fatal]
  - Dysphagia [Unknown]
  - Hip fracture [Recovered/Resolved with Sequelae]
  - Orthostatic hypotension [Not Recovered/Not Resolved]
  - Respiratory failure [Unknown]
  - Hepatic enzyme increased [Not Recovered/Not Resolved]
  - Pneumonia aspiration [Fatal]

NARRATIVE: CASE EVENT DATE: 20200209
